FAERS Safety Report 19167907 (Version 2)
Quarter: 2021Q2

REPORT INFORMATION
  Report Type: Report from Study
  Country: IN (occurrence: IN)
  Receive Date: 20210422
  Receipt Date: 20210613
  Transmission Date: 20210717
  Serious: Yes (Hospitalization)
  Sender: FDA-Public Use
  Company Number: IN-JNJFOC-20210422667

PATIENT
  Age: 5 Decade
  Sex: Female
  Weight: 60 kg

DRUGS (11)
  1. DARUNAVIR [Suspect]
     Active Substance: DARUNAVIR
     Indication: HIV INFECTION
     Route: 048
     Dates: start: 20191214, end: 20210313
  2. RITONAVIR. [Suspect]
     Active Substance: RITONAVIR
     Indication: HIV INFECTION
     Route: 065
     Dates: start: 20191214, end: 20210313
  3. TELMA [Concomitant]
     Active Substance: TELMISARTAN
     Indication: HYPERTENSION
     Route: 065
     Dates: start: 20200114
  4. NEXITO FORTE [Concomitant]
     Indication: DEPRESSION
     Route: 065
     Dates: start: 20210405
  5. LAMIVUDINE. [Suspect]
     Active Substance: LAMIVUDINE
     Indication: HIV INFECTION
     Route: 065
     Dates: start: 20210410
  6. RICONIA [VITAMINS NOS] [Concomitant]
     Indication: SUPPLEMENTATION THERAPY
     Route: 065
     Dates: start: 20200307
  7. DOLUTEGRAVIR [Suspect]
     Active Substance: DOLUTEGRAVIR
     Route: 065
     Dates: start: 20210410
  8. DOLUTEGRAVIR [Suspect]
     Active Substance: DOLUTEGRAVIR
     Indication: HIV INFECTION
     Route: 065
     Dates: start: 20191214, end: 20210313
  9. TENOFOVIR [Suspect]
     Active Substance: TENOFOVIR
     Indication: HIV INFECTION
     Route: 065
     Dates: start: 20210410
  10. LIVOGEN [FERROUS ASCORBATE;FOLIC ACID] [Concomitant]
     Indication: VITAMIN SUPPLEMENTATION
     Route: 065
     Dates: start: 20191205
  11. MIRTAZAPINE. [Concomitant]
     Active Substance: MIRTAZAPINE
     Indication: DEPRESSION
     Route: 065
     Dates: start: 20210407

REACTIONS (1)
  - Adjustment disorder with depressed mood [Recovered/Resolved]

NARRATIVE: CASE EVENT DATE: 20210405
